FAERS Safety Report 5002874-2 (Version None)
Quarter: 2006Q2

REPORT INFORMATION
  Report Type: 
  Country: None (occurrence: None)
  Receive Date: 20060516
  Receipt Date: 20060511
  Transmission Date: 20061013
  Serious: Yes (Disabling)
  Sender: FDA-Public Use
  Company Number: 2006UW09186

PATIENT
  Sex: Female

DRUGS (4)
  1. SEROQUEL [Suspect]
     Route: 048
     Dates: start: 20051123
  2. ARICEPT [Concomitant]
  3. TEMAZEPAM [Concomitant]
  4. PRAVACHOL [Concomitant]

REACTIONS (2)
  - DIFFICULTY IN WALKING [None]
  - POSTURE ABNORMAL [None]
